FAERS Safety Report 19295061 (Version 1)
Quarter: 2021Q2

REPORT INFORMATION
  Report Type: Spontaneous
  Country: SE (occurrence: SE)
  Receive Date: 20210524
  Receipt Date: 20210524
  Transmission Date: 20210717
  Serious: Yes (Hospitalization)
  Sender: FDA-Public Use
  Company Number: SE-TEVA-2021-SE-1913860

PATIENT
  Age: 77 Year
  Sex: Male

DRUGS (7)
  1. ATORVASTATIN [Concomitant]
     Active Substance: ATORVASTATIN
     Dosage: 80 MG
     Dates: start: 20201027
  2. ELIQUIS [Concomitant]
     Active Substance: APIXABAN
     Dosage: 10 MG
     Dates: start: 20171211
  3. BISOPROLOL [Suspect]
     Active Substance: BISOPROLOL
     Dosage: 1.25 MG
     Dates: start: 20201027
  4. MULTAQ [Concomitant]
     Active Substance: DRONEDARONE
     Dosage: 800 MG
     Dates: start: 20201027
  5. ENALAPRIL [Concomitant]
     Active Substance: ENALAPRIL
     Dosage: 1.5 TABLETS ONCE DAILY , UNIT DOSE : 15 MG
     Dates: start: 20171211
  6. TROMBYL [Concomitant]
     Active Substance: ASPIRIN
     Dosage: 75 MG
  7. ATORVASTATIN [Concomitant]
     Active Substance: ATORVASTATIN
     Dosage: 40 MG
     Dates: end: 20201026

REACTIONS (3)
  - Dizziness [Recovered/Resolved]
  - Bradycardia [Recovered/Resolved]
  - Vision blurred [Recovered/Resolved]

NARRATIVE: CASE EVENT DATE: 202010
